FAERS Safety Report 17087355 (Version 2)
Quarter: 2020Q1

REPORT INFORMATION
  Report Type: Spontaneous
  Country: JP (occurrence: JP)
  Receive Date: 20191128
  Receipt Date: 20200117
  Transmission Date: 20200409
  Serious: Yes (Life-Threatening, Other)
  Sender: FDA-Public Use
  Company Number: JP-PFIZER INC-2019511959

PATIENT
  Age: 80 Year
  Sex: Female
  Weight: 37 kg

DRUGS (11)
  1. DORNER [Concomitant]
     Active Substance: BERAPROST SODIUM
     Dosage: UNK
     Route: 065
     Dates: start: 20180921
  2. FOLIAMIN [Concomitant]
     Active Substance: FOLIC ACID
     Dosage: UNK
     Route: 065
     Dates: start: 20181218
  3. ACTEMRA [Concomitant]
     Active Substance: TOCILIZUMAB
     Dosage: UNK
     Route: 041
     Dates: start: 20190705, end: 20190705
  4. LYRICA [Concomitant]
     Active Substance: PREGABALIN
     Dosage: UNK
     Route: 065
     Dates: start: 20190215, end: 20190411
  5. SIMPONI [Suspect]
     Active Substance: GOLIMUMAB
     Indication: RHEUMATOID ARTHRITIS
     Dosage: 50 MG, MONTHLY
     Route: 058
     Dates: start: 20190118
  6. ACTEMRA [Concomitant]
     Active Substance: TOCILIZUMAB
     Indication: RHEUMATOID ARTHRITIS
     Dosage: UNK
     Route: 041
     Dates: start: 20190607, end: 20190607
  7. RHEUMATREX [Suspect]
     Active Substance: METHOTREXATE SODIUM
     Dosage: 12 MG, WEEKLY
     Route: 048
  8. RHEUMATREX [Suspect]
     Active Substance: METHOTREXATE SODIUM
     Dosage: 10 MG, WEEKLY (4-4-2)
     Route: 048
     Dates: start: 20190118, end: 20190714
  9. SIMPONI [Suspect]
     Active Substance: GOLIMUMAB
     Dosage: 100 MG, MONTHLY
     Route: 058
     Dates: end: 20190510
  10. RHEUMATREX [Suspect]
     Active Substance: METHOTREXATE SODIUM
     Indication: RHEUMATOID ARTHRITIS
     Dosage: 6 MG, WEEKLY
     Route: 048
     Dates: start: 20180921
  11. BRUFEN [Concomitant]
     Active Substance: IBUPROFEN
     Dosage: UNK
     Route: 065
     Dates: start: 20180914, end: 20181113

REACTIONS (5)
  - Lower gastrointestinal perforation [Not Recovered/Not Resolved]
  - Peritonitis [Not Recovered/Not Resolved]
  - Colon cancer [Not Recovered/Not Resolved]
  - Liver disorder [Unknown]
  - Metastases to peritoneum [Not Recovered/Not Resolved]

NARRATIVE: CASE EVENT DATE: 20190719
